FAERS Safety Report 20611498 (Version 3)
Quarter: 2022Q4

REPORT INFORMATION
  Report Type: Spontaneous
  Country: CH (occurrence: None)
  Receive Date: 20220318
  Receipt Date: 20221006
  Transmission Date: 20230112
  Serious: Yes (Hospitalization, Other)
  Sender: FDA-Public Use
  Company Number: 2022A117704

PATIENT
  Age: 51 Year
  Sex: Female

DRUGS (7)
  1. NEXIUM [Suspect]
     Active Substance: ESOMEPRAZOLE MAGNESIUM
     Indication: Product used for unknown indication
     Dosage: 40 MG, 1 DAYS
     Route: 048
     Dates: start: 202107, end: 202112
  2. NEXIUM [Suspect]
     Active Substance: ESOMEPRAZOLE MAGNESIUM
     Indication: Product used for unknown indication
     Dosage: 40 MG, 2 DAYS
     Route: 048
     Dates: start: 202112
  3. NEXIUM [Suspect]
     Active Substance: ESOMEPRAZOLE MAGNESIUM
     Indication: Product used for unknown indication
     Dosage: 40 MILLIGRAM, 2/DAY
     Route: 048
     Dates: start: 202112
  4. CRESTOR [Suspect]
     Active Substance: ROSUVASTATIN CALCIUM
     Indication: Product used for unknown indication
     Dosage: 20 MG, 1 DAY
     Route: 065
     Dates: start: 202105, end: 20220129
  5. TICAGRELOR [Suspect]
     Active Substance: TICAGRELOR
     Indication: Product used for unknown indication
     Dosage: 90 MILLIGRAM, 2/DAY
     Route: 048
     Dates: start: 202105, end: 20220201
  6. ASPIRIN [Concomitant]
     Active Substance: ASPIRIN
     Indication: Product used for unknown indication
     Route: 065
     Dates: start: 202105
  7. EUTHYROX [Concomitant]
     Active Substance: LEVOTHYROXINE SODIUM
     Indication: Product used for unknown indication
     Route: 065
     Dates: start: 2012

REACTIONS (8)
  - Drug interaction [Recovered/Resolved]
  - Rhabdomyolysis [Recovered/Resolved]
  - Liver function test increased [Recovered/Resolved]
  - Acute kidney injury [Unknown]
  - Gastrointestinal obstruction [Unknown]
  - Nausea [Unknown]
  - Abdominal pain upper [Unknown]
  - Hypophagia [Unknown]

NARRATIVE: CASE EVENT DATE: 20210501
